FAERS Safety Report 9862881 (Version 4)
Quarter: 2014Q1

REPORT INFORMATION
  Report Type: Report from Study
  Country: JP (occurrence: JP)
  Receive Date: 20140203
  Receipt Date: 20140321
  Transmission Date: 20141002
  Serious: Yes (Hospitalization)
  Sender: FDA-Public Use
  Company Number: PHJP2014JP000481

PATIENT
  Age: 41 Year
  Sex: Female
  Weight: 79.38 kg

DRUGS (7)
  1. SOM230 [Suspect]
     Indication: ACROMEGALY
     Dosage: 60 MG
     Route: 030
     Dates: start: 20131121, end: 20140129
  2. SOM230 [Suspect]
     Dosage: 40 MG, UNK
     Route: 030
     Dates: start: 20140130
  3. JANUVIA [Concomitant]
     Indication: DIABETES MELLITUS
     Dosage: 100 MG, QD
     Route: 048
     Dates: start: 20131203, end: 20140124
  4. METGLUCO [Concomitant]
     Indication: DIABETES MELLITUS
     Dosage: 250 MG, BID
     Route: 048
     Dates: start: 20131219, end: 20140124
  5. GLIMICRON [Concomitant]
     Indication: DIABETES MELLITUS
     Dosage: 40 MG, QD
     Route: 048
     Dates: start: 20140109, end: 20140124
  6. LENDORMIN [Concomitant]
     Indication: INSOMNIA
     Dosage: 0.25 MG, QD
     Route: 048
     Dates: start: 20130808
  7. ORAL BLOOD GLUCOSE LOWERING DRUGS [Concomitant]

REACTIONS (1)
  - Diabetes mellitus [Recovering/Resolving]
